FAERS Safety Report 22197162 (Version 1)
Quarter: 2023Q2

REPORT INFORMATION
  Report Type: Spontaneous
  Country: JP (occurrence: JP)
  Receive Date: 20230411
  Receipt Date: 20230411
  Transmission Date: 20230721
  Serious: Yes (Hospitalization, Other)
  Sender: FDA-Public Use
  Company Number: JP-VIATRISJAPAN-2023M1036391AA

PATIENT
  Age: 92 Year

DRUGS (2)
  1. EPLERENONE [Suspect]
     Active Substance: EPLERENONE
     Indication: Hypertension
     Dosage: UNK
     Route: 048
     Dates: start: 20230331
  2. ENTRESTO [Concomitant]
     Active Substance: SACUBITRIL\VALSARTAN
     Indication: Product used for unknown indication
     Dosage: UNK
     Route: 065

REACTIONS (1)
  - Hypokalaemia [Unknown]

NARRATIVE: CASE EVENT DATE: 20230405
